FAERS Safety Report 10614796 (Version 1)
Quarter: 2014Q4

REPORT INFORMATION
  Report Type: Spontaneous
  Country: DE (occurrence: DE)
  Receive Date: 20141201
  Receipt Date: 20141201
  Transmission Date: 20150529
  Serious: Yes (Other)
  Sender: FDA-Public Use
  Company Number: DE-CIPLA LTD.-2014DE02238

PATIENT
  Age: 53 Year

DRUGS (4)
  1. GEMCITABINE [Suspect]
     Active Substance: GEMCITABINE\GEMCITABINE HYDROCHLORIDE
     Dosage: 1,000 MG/M2 FROM CYCLE 3 ON DAYS 1, 8 AND 15.
  2. PACLITAXEL. [Suspect]
     Active Substance: PACLITAXEL
     Dosage: 125 MG/M2 FROM CYCLE 3 ONWARDS ON DAYS 1, 8 AND 15.
  3. PACLITAXEL. [Suspect]
     Active Substance: PACLITAXEL
     Indication: METASTASES TO LUNG
     Dosage: 100 MG/M2 ON DAYS 1, 8 AND 15 OF A 28 DAY CYCLE
  4. GEMCITABINE [Suspect]
     Active Substance: GEMCITABINE\GEMCITABINE HYDROCHLORIDE
     Indication: METASTASES TO LUNG
     Dosage: 800 MG/M2 ON DAYS 1, 8 AND 15 OF A 28 DAY CYCLE

REACTIONS (1)
  - Malignant neoplasm progression [Unknown]
